FAERS Safety Report 5786810-7 (Version None)
Quarter: 2008Q3

REPORT INFORMATION
  Report Type: 
  Country: None (occurrence: None)
  Receive Date: 20080618
  Receipt Date: 20080605
  Transmission Date: 20090109
  Serious: Yes (Other)
  Sender: FDA-Public Use
  Company Number: 805#1#2008-00013

PATIENT
  Age: 80 Year
  Sex: Female

DRUGS (9)
  1. ALPROSTADIL [Suspect]
     Indication: ARTERIOSCLEROSIS OBLITERANS
     Dosage: 80 MCG   INTRAVENOUS DRIP
     Route: 041
     Dates: start: 20080529, end: 20080602
  2. ACETYLSALICYLIC ACID SRT [Concomitant]
  3. VALSARTAN [Concomitant]
  4. BENZBROMARONE (BENZBROMARONE) [Concomitant]
  5. SARPOGRELATE HYDROCHLORIDE (SARPOGRELATE HYDROCHLORIDE) [Concomitant]
  6. SENNOSIDE A+B (SENNA LEAF) [Concomitant]
  7. SODIUM PICOSULFATE (SODIUM PICOSULFATE) [Concomitant]
  8. ASIAN GINSENG, ZANTHOXYLUM FRUIT, GINGER, MALT SUGAR [Concomitant]
  9. DIGOXIN [Concomitant]

REACTIONS (2)
  - CARDIAC FAILURE CONGESTIVE [None]
  - PULMONARY OEDEMA [None]
